FAERS Safety Report 8847585 (Version 1)
Quarter: 2012Q4

REPORT INFORMATION
  Report Type: 
  Country: IT (occurrence: IT)
  Receive Date: 20121018
  Receipt Date: 20121018
  Transmission Date: 20130627
  Serious: Yes (Other)
  Sender: FDA-Public Use
  Company Number: IT-ALEXION PHARMACEUTICALS INC.-A201201961

PATIENT
  Age: 8 Month
  Sex: Male
  Weight: 10 kg

DRUGS (3)
  1. SOLIRIS 300MG [Suspect]
     Indication: HAEMOLYTIC URAEMIC SYNDROME
     Dosage: 300 mg, qw
     Route: 042
     Dates: start: 201004, end: 2010
  2. SOLIRIS 300MG [Suspect]
     Dosage: 300 mg, q2w
     Route: 042
     Dates: start: 2010, end: 2010
  3. SOLIRIS 300MG [Suspect]
     Dosage: 300 mg, q3w
     Dates: start: 2010

REACTIONS (3)
  - Device related sepsis [Unknown]
  - Staphylococcal sepsis [Unknown]
  - Upper respiratory tract infection [Unknown]
